FAERS Safety Report 15806956 (Version 2)
Quarter: 2019Q1

REPORT INFORMATION
  Report Type: Report from Study
  Country: GB (occurrence: GB)
  Receive Date: 20190110
  Receipt Date: 20190128
  Transmission Date: 20190417
  Serious: Yes (Hospitalization)
  Sender: FDA-Public Use
  Company Number: GB-TEVA-2019-GB-996349

PATIENT
  Sex: Female

DRUGS (1)
  1. COPAXONE [Suspect]
     Active Substance: GLATIRAMER ACETATE
     Indication: MULTIPLE SCLEROSIS
     Dosage: PRE-FILLED SYRINGE
     Route: 058
     Dates: start: 20170801

REACTIONS (7)
  - Hot flush [Unknown]
  - Palpitations [Unknown]
  - Tremor [Unknown]
  - Headache [Unknown]
  - Burning sensation [Unknown]
  - Erythema [Unknown]
  - Head discomfort [Unknown]
